FAERS Safety Report 4919819-3 (Version None)
Quarter: 2006Q1

REPORT INFORMATION
  Report Type: 
  Country: None (occurrence: None)
  Receive Date: 20060217
  Receipt Date: 20060207
  Transmission Date: 20060701
  Serious: Yes (Hospitalization, Other)
  Sender: FDA-Public Use
  Company Number: 2006019293

PATIENT
  Sex: Female

DRUGS (2)
  1. METHYLPREDNISOLONE ACETATE [Suspect]
     Indication: BURSITIS
     Dosage: 80 MG (80 MG, SINGLE)
     Dates: start: 20060120, end: 20060120
  2. LIGNOCAINE (LIGNOCAINE) [Suspect]
     Indication: BURSITIS
     Dosage: 10 MG (10 MG, SINGLE)
     Dates: start: 20060120, end: 20060120

REACTIONS (4)
  - DIZZINESS [None]
  - TACHYCARDIA [None]
  - TREMOR [None]
  - VOMITING [None]
